FAERS Safety Report 9848572 (Version 1)
Quarter: 2014Q1

REPORT INFORMATION
  Report Type: Spontaneous
  Country: US (occurrence: US)
  Receive Date: 20140128
  Receipt Date: 20140128
  Transmission Date: 20141002
  Serious: Yes (Hospitalization, Other)
  Sender: FDA-Public Use
  Company Number: US-JNJFOC-20140109355

PATIENT
  Age: 81 Year
  Sex: Male
  Weight: 74.84 kg

DRUGS (16)
  1. RISPERDAL [Suspect]
     Indication: HALLUCINATION
     Route: 048
     Dates: start: 201309
  2. RISPERDAL [Suspect]
     Indication: HALLUCINATION
     Dosage: 1/4 TABLET DAILY OR ONE TABLET EVERY OTHER DAY DURING WEEK 2
     Route: 048
  3. RISPERDAL [Suspect]
     Indication: HALLUCINATION
     Dosage: 1/2 TABLET
     Route: 048
  4. LEVOTHYROXINE [Suspect]
     Indication: PRODUCT USED FOR UNKNOWN INDICATION
     Route: 048
     Dates: start: 2013
  5. LEVOTHYROXINE [Suspect]
     Indication: PRODUCT USED FOR UNKNOWN INDICATION
     Route: 048
     Dates: start: 2013
  6. CIPROFLOXACIN [Suspect]
     Indication: UPPER RESPIRATORY TRACT INFECTION
     Route: 048
     Dates: start: 20140110
  7. LEXAPRO [Suspect]
     Indication: ANTIDEPRESSANT THERAPY
     Route: 048
     Dates: start: 201309
  8. VITAMIN D3 [Concomitant]
     Route: 065
  9. ASPIRIN [Concomitant]
     Route: 048
  10. IRON [Concomitant]
     Route: 048
  11. AMIODARONE [Concomitant]
     Indication: ARRHYTHMIA
     Route: 048
  12. MULTIVITAMINS [Concomitant]
     Route: 048
  13. ATORVASTATIN [Concomitant]
     Route: 048
  14. ARICEPT [Concomitant]
     Indication: DEMENTIA
     Route: 048
  15. ARICEPT [Concomitant]
     Indication: DEMENTIA ALZHEIMER^S TYPE
     Route: 048
  16. COUMADIN [Concomitant]
     Indication: ANTICOAGULANT THERAPY
     Route: 048

REACTIONS (10)
  - Blood pressure diastolic decreased [Unknown]
  - Palpitations [Unknown]
  - Abnormal loss of weight [Not Recovered/Not Resolved]
  - Upper respiratory tract infection [Unknown]
  - Inadequate diet [Not Recovered/Not Resolved]
  - Urine odour abnormal [Recovered/Resolved]
  - Asthenia [Not Recovered/Not Resolved]
  - Adverse event [Unknown]
  - Feeling abnormal [Not Recovered/Not Resolved]
  - Fall [Unknown]
